FAERS Safety Report 15209831 (Version 3)
Quarter: 2018Q4

REPORT INFORMATION
  Report Type: Report from Study
  Country: US (occurrence: US)
  Receive Date: 20180727
  Receipt Date: 20181120
  Transmission Date: 20190204
  Serious: Yes (Hospitalization)
  Sender: FDA-Public Use
  Company Number: US-ACTELION-A-NJ2017-162763

PATIENT
  Age: 52 Year
  Sex: Female
  Weight: 73.16 kg

DRUGS (7)
  1. OPSUMIT [Suspect]
     Active Substance: MACITENTAN
     Indication: PULMONARY HYPERTENSION
     Dosage: 10 MG, QD
     Route: 048
     Dates: start: 20171024
  2. MYCOPHENOLATE [Concomitant]
     Active Substance: MYCOPHENOLIC ACID
     Dosage: 1500 MG, BID
     Dates: start: 2015
  3. OPSUMIT [Suspect]
     Active Substance: MACITENTAN
     Dosage: 10 MG, QD
     Route: 048
  4. TADALAFIL. [Suspect]
     Active Substance: TADALAFIL
     Indication: PRODUCT USED FOR UNKNOWN INDICATION
     Route: 065
  5. NORCO [Concomitant]
     Active Substance: ACETAMINOPHEN\HYDROCODONE BITARTRATE
     Dosage: 10/325
  6. BACLOFEN. [Concomitant]
     Active Substance: BACLOFEN
     Dosage: 20 MG, QPM
     Dates: start: 201712
  7. PREVACID [Concomitant]
     Active Substance: LANSOPRAZOLE
     Dosage: 60 MG, BID
     Dates: start: 2010

REACTIONS (8)
  - Hospitalisation [Unknown]
  - Oropharyngeal pain [Unknown]
  - Headache [Recovering/Resolving]
  - Throat irritation [Unknown]
  - Chest pain [Unknown]
  - Oedema peripheral [Unknown]
  - Nasal congestion [Unknown]
  - Fluid retention [Unknown]

NARRATIVE: CASE EVENT DATE: 201711
